FAERS Safety Report 6367517-4 (Version None)
Quarter: 2009Q3

REPORT INFORMATION
  Report Type: 
  Country: None (occurrence: None)
  Receive Date: 20090921
  Receipt Date: 20090911
  Transmission Date: 20100115
  Serious: Yes (Other)
  Sender: FDA-Public Use
  Company Number: KR-SANOFI-SYNTHELABO-A01200909480

PATIENT
  Age: 65 Year
  Sex: Male

DRUGS (1)
  1. STILNOX CR [Suspect]
     Indication: INSOMNIA
     Route: 048
     Dates: start: 20090911

REACTIONS (2)
  - ENURESIS [None]
  - SLEEP APNOEA SYNDROME [None]
